FAERS Safety Report 13849772 (Version 2)
Quarter: 2017Q3

REPORT INFORMATION
  Report Type: Report from Study
  Country: US (occurrence: US)
  Receive Date: 20170809
  Receipt Date: 20170829
  Transmission Date: 20171127
  Serious: No
  Sender: FDA-Public Use
  Company Number: GXBR2017US002213

PATIENT
  Sex: Female

DRUGS (1)
  1. OMNITROPE [Suspect]
     Active Substance: SOMATROPIN
     Indication: TURNER^S SYNDROME
     Dosage: 1.2 MG, QD (7 DAYS A WEEK)
     Route: 058
     Dates: start: 20160928

REACTIONS (4)
  - Injection site pain [Recovered/Resolved]
  - Device operational issue [Unknown]
  - Device malfunction [Unknown]
  - Incorrect dose administered by device [Unknown]
